FAERS Safety Report 9371594 (Version 1)
Quarter: 2013Q2

REPORT INFORMATION
  Report Type: Spontaneous
  Country: US (occurrence: None)
  Receive Date: 20130626
  Receipt Date: 20130626
  Transmission Date: 20140414
  Serious: Yes (Hospitalization)
  Sender: FDA-Public Use
  Company Number: None

PATIENT
  Age: 8 Year
  Sex: Male
  Weight: 26.5 kg

DRUGS (1)
  1. ADVAIR DISKUS [Suspect]
     Indication: ASTHMA
     Dosage: 1 PUFF BID INHAL
     Route: 055
     Dates: start: 20080929, end: 20080929

REACTIONS (1)
  - Dyspnoea [None]
